FAERS Safety Report 6327559-1 (Version None)
Quarter: 2009Q3

REPORT INFORMATION
  Report Type: 
  Country: None (occurrence: None)
  Receive Date: 20090825
  Receipt Date: 20090812
  Transmission Date: 20100115
  Serious: Yes (Other)
  Sender: FDA-Public Use
  Company Number: GB-ELI_LILLY_AND_COMPANY-GB200908002735

PATIENT
  Age: 55 Year
  Sex: Female
  Weight: 72.5 kg

DRUGS (2)
  1. FLUOXETINE [Suspect]
     Indication: DEPRESSION
     Dosage: 20 MG, UNKNOWN
     Route: 048
     Dates: start: 20090312, end: 20090713
  2. TIBOLONE [Concomitant]
     Indication: HORMONE REPLACEMENT THERAPY
     Dosage: 2.5 MG, UNKNOWN
     Route: 048
     Dates: start: 20040101

REACTIONS (1)
  - SLEEP APNOEA SYNDROME [None]
